FAERS Safety Report 25169585 (Version 1)
Quarter: 2025Q2

REPORT INFORMATION
  Report Type: Report from Study
  Country: CA (occurrence: CA)
  Receive Date: 20250407
  Receipt Date: 20250407
  Transmission Date: 20250717
  Serious: Yes (Other)
  Sender: CSL BEHRING
  Company Number: CA-BEH-2024168660

PATIENT
  Age: 50 Year
  Sex: Female
  Weight: 89 kg

DRUGS (6)
  1. HIZENTRA [Suspect]
     Active Substance: HUMAN IMMUNOGLOBULIN G
     Indication: Primary immunodeficiency syndrome
     Dosage: 10 GRAM, QW
     Route: 065
     Dates: start: 20210411
  2. HIZENTRA [Suspect]
     Active Substance: HUMAN IMMUNOGLOBULIN G
     Dosage: PRODUCT STRENGTH: 10G, QW
     Route: 065
     Dates: start: 20210411
  3. DYMISTA [Concomitant]
     Active Substance: AZELASTINE HYDROCHLORIDE\FLUTICASONE PROPIONATE
  4. CETIRIZINE HYDROCHLORIDE [Concomitant]
     Active Substance: CETIRIZINE HYDROCHLORIDE
  5. IPRATROPIUM BROMIDE [Concomitant]
     Active Substance: IPRATROPIUM BROMIDE
  6. PREVNAR 20 [Concomitant]
     Active Substance: PNEUMOCOCCAL 20-VALENT CONJUGATE VACCINE
     Indication: Pneumococcal immunisation
     Route: 065

REACTIONS (21)
  - Lower respiratory tract infection [Unknown]
  - Type 2 diabetes mellitus [Unknown]
  - Productive cough [Unknown]
  - Sputum purulent [Unknown]
  - Rhinitis [Unknown]
  - Weight decreased [Unknown]
  - Bronchitis [Unknown]
  - Weight decreased [Unknown]
  - Haemoglobin decreased [Unknown]
  - Respiratory tract infection [Unknown]
  - Stress [Unknown]
  - Grief reaction [Unknown]
  - Depression [Unknown]
  - Sputum purulent [Unknown]
  - Cough [Unknown]
  - Oropharyngeal pain [Unknown]
  - Dyspnoea [Unknown]
  - Hot flush [Unknown]
  - Night sweats [Unknown]
  - Constipation [Unknown]
  - Product dose omission issue [Unknown]

NARRATIVE: CASE EVENT DATE: 20240201
